FAERS Safety Report 7965663-2 (Version None)
Quarter: 2011Q4

REPORT INFORMATION
  Report Type: 
  Country: None (occurrence: None)
  Receive Date: 20111208
  Receipt Date: 20111202
  Transmission Date: 20120403
  Serious: Yes (Other)
  Sender: FDA-Public Use
  Company Number: US-NOVOPROD-340910

PATIENT

DRUGS (1)
  1. NORDITROPIN FLEXPRO [Suspect]
     Dosage: UNK
     Route: 065

REACTIONS (1)
  - CARDIAC MURMUR [None]
